FAERS Safety Report 8952295 (Version 1)
Quarter: 2012Q4

REPORT INFORMATION
  Report Type: 
  Country: DE (occurrence: DE)
  Receive Date: 20121205
  Receipt Date: 20121205
  Transmission Date: 20130627
  Serious: Yes (Death, Other)
  Sender: FDA-Public Use
  Company Number: DE-AMGEN-DEUSP2012077025

PATIENT
  Age: 53 Year
  Sex: Male

DRUGS (4)
  1. VECTIBIX [Suspect]
     Indication: COLORECTAL CANCER
     Dosage: UNK
  2. VECTIBIX [Suspect]
     Indication: METASTASES TO PERITONEUM
  3. VECTIBIX [Suspect]
     Indication: METASTASES TO LIVER
  4. FOLFIRI [Concomitant]
     Dosage: UNK

REACTIONS (4)
  - Death [Fatal]
  - Hepatomegaly [Unknown]
  - Laboratory test abnormal [Unknown]
  - Condition aggravated [Unknown]
